FAERS Safety Report 5563729-8 (Version None)
Quarter: 2007Q4

REPORT INFORMATION
  Report Type: 
  Country: None (occurrence: None)
  Receive Date: 20071217
  Receipt Date: 20070806
  Transmission Date: 20080405
  Serious: No
  Sender: FDA-Public Use
  Company Number: US-ASTRAZENECA-2007UW18966

PATIENT
  Age: 74 Year
  Sex: Female
  Weight: 88.9 kg

DRUGS (2)
  1. CRESTOR [Suspect]
     Indication: BLOOD CHOLESTEROL INCREASED
     Route: 048
     Dates: start: 20060101
  2. DIOVAN [Concomitant]

REACTIONS (2)
  - ALOPECIA [None]
  - MYALGIA [None]
